FAERS Safety Report 6023518-7 (Version None)
Quarter: 2008Q4

REPORT INFORMATION
  Report Type: 
  Country: None (occurrence: None)
  Receive Date: 20081230
  Receipt Date: 20081208
  Transmission Date: 20090506
  Serious: Yes (Hospitalization)
  Sender: FDA-Public Use
  Company Number: PHHY2008TW30207

PATIENT
  Sex: Female
  Weight: 54 kg

DRUGS (3)
  1. ZOLEDRONATE T29581++BM [Suspect]
     Indication: BREAST CANCER METASTATIC
     Dosage: 4 MG, QMO
     Route: 042
     Dates: start: 20080901
  2. NEUPOGEN [Concomitant]
     Indication: NEUTROPENIA
     Dosage: 75 MCG
     Dates: start: 20081203, end: 20081205
  3. ZOLPIDEM [Concomitant]
     Dosage: 10 MG
     Dates: start: 20081201

REACTIONS (6)
  - ASTHENIA [None]
  - DIARRHOEA [None]
  - NEUTROPHIL COUNT DECREASED [None]
  - PAIN [None]
  - VOMITING [None]
  - WHITE BLOOD CELL COUNT DECREASED [None]
